FAERS Safety Report 24956330 (Version 1)
Quarter: 2025Q1

REPORT INFORMATION
  Report Type: Spontaneous
  Country: FR (occurrence: FR)
  Receive Date: 20250211
  Receipt Date: 20250211
  Transmission Date: 20250408
  Serious: Yes (Other)
  Sender: SANDOZ
  Company Number: None

PATIENT
  Age: 68 Year
  Sex: Female
  Weight: 66 kg

DRUGS (2)
  1. ACLASTA [Suspect]
     Active Substance: ZOLEDRONIC ACID
     Indication: Osteopenia
     Route: 058
     Dates: start: 20241015
  2. XGEVA [Suspect]
     Active Substance: DENOSUMAB
     Indication: Cervix carcinoma
     Route: 058
     Dates: start: 20130115, end: 20240915

REACTIONS (1)
  - Osteonecrosis of jaw [Not Recovered/Not Resolved]
